FAERS Safety Report 9022128 (Version 1)
Quarter: 2013Q1

REPORT INFORMATION
  Report Type: Spontaneous
  Country: JP (occurrence: JP)
  Receive Date: 20130118
  Receipt Date: 20130118
  Transmission Date: 20140127
  Serious: Yes (Other)
  Sender: FDA-Public Use
  Company Number: PHHY2012JP097802

PATIENT
  Age: 82 Year
  Sex: Male

DRUGS (16)
  1. RIVASTIGMINE [Suspect]
     Indication: DEMENTIA ALZHEIMER^S TYPE
     Dosage: 4.5 MG, QD
     Route: 062
     Dates: start: 20121011, end: 20121015
  2. RIVASTIGMINE [Suspect]
     Dosage: UNK UKN, UNK
     Route: 062
     Dates: start: 20121024
  3. CIPROXAN [Concomitant]
     Dosage: UNK UKN, UNK
     Dates: start: 20121007, end: 20121010
  4. SULPERAZON [Concomitant]
     Dosage: UNK UKN, UNK
     Dates: start: 20121011, end: 20121015
  5. MEROPEN [Concomitant]
     Dosage: UNK UKN, UNK
     Dates: start: 20121015, end: 20121018
  6. VANCOMYCIN [Concomitant]
     Dosage: UNK UKN, UNK
     Dates: start: 20121018, end: 20121031
  7. ZOSYN [Concomitant]
     Dosage: UNK UKN, UNK
     Dates: start: 20121019, end: 20121101
  8. LASIX [Concomitant]
     Dosage: UNK UKN, UNK
     Dates: start: 20121011, end: 20121117
  9. SOLDACTONE [Concomitant]
     Dosage: UNK UKN, UNK
     Dates: start: 20121011, end: 20121117
  10. BAYASPIRIN [Concomitant]
     Dosage: UNK UKN, UNK
     Dates: start: 20121001, end: 20121022
  11. GASTER D [Concomitant]
     Dosage: UNK UKN, UNK
     Dates: start: 20121001, end: 20121022
  12. NORVASC [Concomitant]
     Dosage: UNK UKN, UNK
     Dates: start: 20121001, end: 20121022
  13. HARNAL [Concomitant]
     Dosage: UNK UKN, UNK
     Dates: start: 20121001, end: 20121022
  14. CRESTOR [Concomitant]
     Dosage: UNK UKN, UNK
     Dates: start: 20121001, end: 20121022
  15. LECICARBON [Concomitant]
     Dosage: UNK UKN, UNK
     Dates: start: 20121009
  16. DIURETICS [Concomitant]
     Indication: CARDIAC FAILURE
     Dosage: UNK UKN, UNK

REACTIONS (5)
  - Disseminated intravascular coagulation [Recovering/Resolving]
  - Pyrexia [Recovered/Resolved]
  - Speech disorder [Recovered/Resolved]
  - Soliloquy [Recovered/Resolved]
  - Logorrhoea [Recovered/Resolved]
